FAERS Safety Report 4533727-1 (Version None)
Quarter: 2004Q4

REPORT INFORMATION
  Report Type: 
  Country: None (occurrence: None)
  Receive Date: 20041221
  Receipt Date: 20041215
  Transmission Date: 20050328
  Serious: Yes (Death, Hospitalization)
  Sender: FDA-Public Use
  Company Number: FR-GLAXOSMITHKLINE-B0361800A

PATIENT
  Age: 88 Year
  Sex: Male

DRUGS (5)
  1. AUGMENTIN '125' [Suspect]
     Indication: ILL-DEFINED DISORDER
     Dosage: 3G PER DAY
     Route: 042
     Dates: start: 20041112, end: 20041117
  2. OFLOCET [Suspect]
     Dosage: 200MG TWICE PER DAY
     Route: 048
     Dates: start: 20041113, end: 20041117
  3. NEXIUM [Suspect]
     Dosage: 40MG PER DAY
     Route: 048
     Dates: end: 20041117
  4. PRIMPERAN [Suspect]
     Dosage: 10MG THREE TIMES PER DAY
     Dates: start: 20041112, end: 20041117
  5. HYDROCORTISONE [Concomitant]
     Dosage: 200MG PER DAY
     Dates: start: 20041111

REACTIONS (2)
  - ACUTE PULMONARY OEDEMA [None]
  - NEUTROPENIA [None]
